FAERS Safety Report 17172325 (Version 2)
Quarter: 2020Q4

REPORT INFORMATION
  Report Type: Report from Study
  Country: BR (occurrence: BR)
  Receive Date: 20191219
  Receipt Date: 20201015
  Transmission Date: 20210113
  Serious: Yes (Hospitalization, Other)
  Sender: FDA-Public Use
  Company Number: PHHY2019BR155838

PATIENT
  Age: 31 Year
  Sex: Female

DRUGS (2)
  1. GILENYA [Suspect]
     Active Substance: FINGOLIMOD HYDROCHLORIDE
     Indication: MULTIPLE SCLEROSIS
     Dosage: UNK
     Route: 065
     Dates: start: 201901
  2. GILENYA [Suspect]
     Active Substance: FINGOLIMOD HYDROCHLORIDE
     Dosage: UNK (DOESNOT USE ON SUNDAY)
     Route: 065

REACTIONS (7)
  - Pre-eclampsia [Recovered/Resolved]
  - Blood pressure increased [Recovered/Resolved]
  - Maternal exposure during pregnancy [Unknown]
  - Product dose omission issue [Unknown]
  - Lymphocyte count decreased [Not Recovered/Not Resolved]
  - Hepatic enzyme increased [Not Recovered/Not Resolved]
  - Premature delivery [Unknown]

NARRATIVE: CASE EVENT DATE: 20191006
